FAERS Safety Report 16409333 (Version 1)
Quarter: 2019Q2

REPORT INFORMATION
  Report Type: Report from Study
  Country: US (occurrence: US)
  Receive Date: 20190610
  Receipt Date: 20190610
  Transmission Date: 20190711
  Serious: Yes (Other)
  Sender: FDA-Public Use
  Company Number: US-JNJFOC-20190608573

PATIENT
  Sex: Male

DRUGS (25)
  1. OMEPRAZOLE. [Concomitant]
     Active Substance: OMEPRAZOLE
  2. CLONAZEPAM. [Concomitant]
     Active Substance: CLONAZEPAM
  3. KLOR-CON [Concomitant]
     Active Substance: POTASSIUM CHLORIDE
  4. LEXAPRO [Concomitant]
     Active Substance: ESCITALOPRAM OXALATE
  5. LANTUS [Concomitant]
     Active Substance: INSULIN GLARGINE
  6. IMBRUVICA [Suspect]
     Active Substance: IBRUTINIB
     Indication: CHRONIC LYMPHOCYTIC LEUKAEMIA
     Route: 048
     Dates: start: 20190104
  7. MELATONIN [Concomitant]
     Active Substance: MELATONIN
  8. LOPRESSOR [Concomitant]
     Active Substance: METOPROLOL TARTRATE
  9. RANEXA [Concomitant]
     Active Substance: RANOLAZINE
  10. CALCIUM [Concomitant]
     Active Substance: CALCIUM
  11. ASPIRIN. [Concomitant]
     Active Substance: ASPIRIN
  12. NITROSTAT [Concomitant]
     Active Substance: NITROGLYCERIN
  13. ANORO ELLIPTA [Concomitant]
     Active Substance: UMECLIDINIUM BROMIDE\VILANTEROL TRIFENATATE
  14. MUCINEX [Concomitant]
     Active Substance: GUAIFENESIN
  15. DIGOXIN. [Concomitant]
     Active Substance: DIGOXIN
  16. PREDNISONE. [Concomitant]
     Active Substance: PREDNISONE
  17. PERCOCET [Concomitant]
     Active Substance: ACETAMINOPHEN\OXYCODONE HYDROCHLORIDE
  18. ALLEGRA [Concomitant]
     Active Substance: FEXOFENADINE HYDROCHLORIDE
  19. NOVOLOG [Concomitant]
     Active Substance: INSULIN ASPART
  20. DALIRESP [Concomitant]
     Active Substance: ROFLUMILAST
  21. VENTOLIN HFA [Concomitant]
     Active Substance: ALBUTEROL SULFATE
  22. BREO ELLIPTA [Concomitant]
     Active Substance: FLUTICASONE FUROATE\VILANTEROL TRIFENATATE
  23. TAMSULOSIN [Concomitant]
     Active Substance: TAMSULOSIN
  24. MULTIVITAMINS [Concomitant]
     Active Substance: VITAMINS
  25. DILTIAZEM HCL [Concomitant]
     Active Substance: DILTIAZEM HYDROCHLORIDE

REACTIONS (1)
  - Thoracic vertebral fracture [Unknown]
